FAERS Safety Report 10065444 (Version 3)
Quarter: 2014Q3

REPORT INFORMATION
  Report Type: Spontaneous
  Country: US (occurrence: US)
  Receive Date: 20140408
  Receipt Date: 20140822
  Transmission Date: 20150326
  Serious: Yes (Other)
  Sender: FDA-Public Use
  Company Number: US-PFIZER INC-2014094769

PATIENT
  Age: 82 Year
  Sex: Female
  Weight: 81.63 kg

DRUGS (1)
  1. TOVIAZ [Suspect]
     Active Substance: FESOTERODINE FUMARATE
     Indication: URINARY INCONTINENCE
     Dosage: 8 MG, DAILY
     Dates: start: 201310

REACTIONS (3)
  - Pruritus [Unknown]
  - Cystitis [Unknown]
  - Blood urine present [Unknown]

NARRATIVE: CASE EVENT DATE: 20140330
